FAERS Safety Report 14508849 (Version 4)
Quarter: 2018Q1

REPORT INFORMATION
  Report Type: Spontaneous
  Country: US (occurrence: US)
  Receive Date: 20180209
  Receipt Date: 20180327
  Transmission Date: 20180509
  Serious: No
  Sender: FDA-Public Use
  Company Number: US-ASTRAZENECA-2018SE15001

PATIENT
  Age: 56 Year
  Sex: Female

DRUGS (4)
  1. PULMICORT FLEXHALER [Suspect]
     Active Substance: BUDESONIDE
     Indication: ASTHMA
     Dosage: 180 MCG, TWO INHALATIONS, TWICE DAILY
     Route: 055
     Dates: start: 20161201
  2. PULMICORT FLEXHALER [Suspect]
     Active Substance: BUDESONIDE
     Indication: LUNG NEOPLASM MALIGNANT
     Dosage: 180 MCG, TWO INHALATIONS, TWICE DAILY
     Route: 055
     Dates: start: 20161201
  3. SPIRIVA [Concomitant]
     Active Substance: TIOTROPIUM BROMIDE MONOHYDRATE
     Indication: LUNG NEOPLASM MALIGNANT
     Dates: start: 20161115
  4. SPIRIVA [Concomitant]
     Active Substance: TIOTROPIUM BROMIDE MONOHYDRATE
     Indication: ASTHMA
     Dates: start: 20161115

REACTIONS (4)
  - Product use issue [Unknown]
  - Drug ineffective [Unknown]
  - Device failure [Unknown]
  - Intentional product misuse [Not Recovered/Not Resolved]
